FAERS Safety Report 6951915-1 (Version None)
Quarter: 2010Q3

REPORT INFORMATION
  Report Type: 
  Country: None (occurrence: None)
  Receive Date: 20100829
  Receipt Date: 20100415
  Transmission Date: 20110219
  Serious: No
  Sender: FDA-Public Use
  Company Number: US-ABBOTT-10P-163-0639607-00

PATIENT
  Sex: Male

DRUGS (5)
  1. NIASPAN [Suspect]
     Indication: BLOOD CHOLESTEROL INCREASED
     Dosage: AT HOUR OF SLEEP
     Route: 048
  2. NIASPAN [Suspect]
     Dosage: AT HOUR OF SLEEP
     Route: 048
  3. NIASPAN [Suspect]
     Dosage: AT HOUR OF SLEEP
     Route: 048
  4. NIASPAN [Suspect]
     Dosage: AT HOUR OF SLEEP
     Route: 048
  5. CRESTOR [Concomitant]
     Indication: BLOOD CHOLESTEROL INCREASED

REACTIONS (1)
  - RASH [None]
